FAERS Safety Report 5047041-1 (Version None)
Quarter: 2006Q3

REPORT INFORMATION
  Report Type: 
  Country: None (occurrence: None)
  Receive Date: 20060703
  Receipt Date: 20060619
  Transmission Date: 20061208
  Serious: Yes (Disabling, Other)
  Sender: FDA-Public Use
  Company Number: 2005085537

PATIENT
  Age: 79 Year
  Sex: Male

DRUGS (1)
  1. NEURONTIN [Suspect]
     Indication: ILL-DEFINED DISORDER

REACTIONS (7)
  - CEREBROVASCULAR ACCIDENT [None]
  - CYST [None]
  - DRUG DISPENSING ERROR [None]
  - FEAR [None]
  - LOSS OF CONSCIOUSNESS [None]
  - PERIARTHRITIS [None]
  - TINNITUS [None]
